FAERS Safety Report 7509474-0 (Version None)
Quarter: 2011Q2

REPORT INFORMATION
  Report Type: 
  Country: None (occurrence: None)
  Receive Date: 20110527
  Receipt Date: 20110516
  Transmission Date: 20111010
  Serious: Yes (Hospitalization)
  Sender: FDA-Public Use
  Company Number: JP-CELGENEUS-087-21880-11051803

PATIENT
  Sex: Male

DRUGS (8)
  1. REVLIMID [Suspect]
     Dosage: 5 MILLIGRAM
     Route: 048
     Dates: start: 20110201, end: 20110203
  2. REVLIMID [Suspect]
     Indication: MULTIPLE MYELOMA
     Dosage: 10 MILLIGRAM
     Route: 048
     Dates: start: 20110114, end: 20110131
  3. ZOLPIDEM [Concomitant]
     Indication: ILL-DEFINED DISORDER
     Dosage: 10 MILLIGRAM
     Route: 048
     Dates: start: 20100310, end: 20110303
  4. WARFARIN POTASSIUM [Concomitant]
     Dosage: 1.5 MILLIGRAM
     Route: 048
     Dates: start: 20110128, end: 20110203
  5. METHYCOBAL [Concomitant]
     Indication: ILL-DEFINED DISORDER
     Dosage: .5 MILLIGRAM
     Route: 048
     Dates: start: 20101014, end: 20110203
  6. ROHYPNOL [Concomitant]
     Indication: ILL-DEFINED DISORDER
     Dosage: 2 MILLIGRAM
     Route: 048
     Dates: start: 20110204, end: 20110303
  7. WARFARIN POTASSIUM [Concomitant]
     Dosage: 1 MILLIGRAM
     Route: 048
     Dates: start: 20110204, end: 20110206
  8. WARFARIN POTASSIUM [Concomitant]
     Indication: ILL-DEFINED DISORDER
     Dosage: 2 MILLIGRAM
     Route: 048
     Dates: start: 20100910, end: 20110127

REACTIONS (5)
  - RHABDOMYOLYSIS [None]
  - CONSTIPATION [None]
  - PYREXIA [None]
  - SEBORRHOEA [None]
  - RENAL IMPAIRMENT [None]
